FAERS Safety Report 23287824 (Version 1)
Quarter: 2023Q4

REPORT INFORMATION
  Report Type: Report from Study
  Country: US (occurrence: US)
  Receive Date: 20231212
  Receipt Date: 20231212
  Transmission Date: 20240109
  Serious: Yes (Other)
  Sender: FDA-Public Use
  Company Number: US-UCBSA-2023054365

PATIENT
  Sex: Male

DRUGS (12)
  1. BRIVARACETAM [Suspect]
     Active Substance: BRIVARACETAM
     Indication: Seizure
     Dosage: 75 MG-2 TABS BID
     Route: 048
  2. VIMPAT [Suspect]
     Active Substance: LACOSAMIDE
     Indication: Product used for unknown indication
     Dosage: 200 MILLIGRAM, 2X/DAY (BID)
     Route: 048
  3. DEXAMETHASONE [Concomitant]
     Active Substance: DEXAMETHASONE
     Indication: Brain oedema
     Dosage: 2 MILLIGRAM, SPECIAL INSTRUCTIONS: TAKE 2 TABS (4MG) FOR 7 DAYS, THEN TAKE 1 TAB (2MG) FOR 7 DAYS, T
     Route: 048
  4. NEXIUM I.V. [Concomitant]
     Active Substance: ESOMEPRAZOLE SODIUM
     Indication: Product used for unknown indication
     Dosage: 20 MILLIGRAM EVERY MORNING
     Route: 048
  5. ESOMEPRAZOLE [Concomitant]
     Active Substance: ESOMEPRAZOLE
     Indication: Gastrooesophageal reflux disease
     Dosage: 20 MILLIGRAM
     Route: 048
  6. VITAMINS [Concomitant]
     Active Substance: VITAMINS
     Indication: Product used for unknown indication
     Dosage: 2 GUMMIES BY MOUTH DAILY
     Route: 048
  7. ZOFRAN [Concomitant]
     Active Substance: ONDANSETRON HYDROCHLORIDE
     Indication: Product used for unknown indication
     Dosage: TAKE 1 TAB PO 1 HR PRIOR TO CHEMO; MAY TAKE 1 TAB Q8HRS PRN NAUSEA/VOMITING; MAX 3 TABS IN 24 HRS.
     Route: 048
  8. BACTRIM [Concomitant]
     Active Substance: SULFAMETHOXAZOLE\TRIMETHOPRIM
     Indication: Product used for unknown indication
     Dosage: 1 DOSAGE FORM
     Route: 048
  9. TEMODAR [Concomitant]
     Active Substance: TEMOZOLOMIDE
     Indication: Product used for unknown indication
     Dosage: TAKE ON AN EMPTY STOMACH. TAKE 1 CAP (140 MG EACH) PO 1 HR PRE-RT AND ON WEEKENDS.
     Route: 048
  10. TEMOZOLOMIDE [Concomitant]
     Active Substance: TEMOZOLOMIDE
     Indication: Product used for unknown indication
     Dosage: TAKE 1 CAPSULE 250 MG BY MOUTH WITH 20 MG CAPSULE ON DAYS 1-5 OF 28 DAY CYCLE.TAKE ON AN EMPTY STOMA
     Route: 048
  11. ACETAMINOPHEN [Concomitant]
     Active Substance: ACETAMINOPHEN
     Indication: Headache
     Dosage: 2 BY MOUTH EVERY 6 HOURS
     Route: 048
  12. CLONAZEPAM [Concomitant]
     Active Substance: CLONAZEPAM
     Indication: Seizure
     Dosage: 0.5 MILLIGRAM, 2X/DAY (BID) FOR SEIZURES LASTING GREATER THAN 2 MINUTES
     Route: 048

REACTIONS (3)
  - Brain neoplasm [Not Recovered/Not Resolved]
  - Off label use [Unknown]
  - Prescribed overdose [Unknown]
